FAERS Safety Report 15753680 (Version 1)
Quarter: 2018Q4

REPORT INFORMATION
  Report Type: Report from Study
  Country: GB (occurrence: GB)
  Receive Date: 20181222
  Receipt Date: 20181222
  Transmission Date: 20190205
  Serious: Yes (Hospitalization, Other)
  Sender: FDA-Public Use
  Company Number: GB-ACCORD-096731

PATIENT
  Age: 71 Year
  Sex: Male

DRUGS (2)
  1. PREDNISOLONE. [Concomitant]
     Active Substance: PREDNISOLONE
     Indication: KIDNEY TRANSPLANT REJECTION
     Dosage: 5 (UNIT NOT PROVIDED), ONCE DAILY
     Route: 065
     Dates: start: 20141031
  2. TACROLIMUS. [Suspect]
     Active Substance: TACROLIMUS
     Indication: RENAL TRANSPLANT
     Dosage: DOSE: 1, 2 (UNKNOWN UNIT), ONCE DAILY, UNKNOWN FREQ.
     Route: 048
     Dates: start: 20151230, end: 20170714

REACTIONS (1)
  - Tonsil cancer [Recovered/Resolved with Sequelae]

NARRATIVE: CASE EVENT DATE: 20170714
